FAERS Safety Report 15713049 (Version 1)
Quarter: 2018Q4

REPORT INFORMATION
  Report Type: Spontaneous
  Country: ES (occurrence: ES)
  Receive Date: 20181212
  Receipt Date: 20181212
  Transmission Date: 20190205
  Serious: Yes (Other)
  Sender: FDA-Public Use
  Company Number: ES-PURDUE-GBR-2018-0062183

PATIENT
  Age: 86 Year
  Sex: Female

DRUGS (9)
  1. ENALAPRIL [Concomitant]
     Active Substance: ENALAPRIL
     Dosage: 10 MG, DAILY
     Route: 048
  2. OMEPRAZOL                          /00661201/ [Concomitant]
     Active Substance: OMEPRAZOLE
     Dosage: 20 MG, DAILY
     Route: 048
  3. MYSOLINE [Concomitant]
     Active Substance: PRIMIDONE
     Dosage: 250 MG, DAILY
     Route: 048
  4. CARVEDILOL. [Concomitant]
     Active Substance: CARVEDILOL
     Dosage: 3 MG, Q12H
     Route: 048
  5. ACETYLSALICYLIC ACID [Concomitant]
     Active Substance: ASPIRIN
     Dosage: 100 MG, DAILY
     Route: 048
  6. MST CONTINUS [Suspect]
     Active Substance: MORPHINE SULFATE
     Indication: PAIN IN EXTREMITY
     Dosage: 5 MG, DAILY (STRENGHT 5MG)
     Route: 048
     Dates: start: 20181029
  7. LORAZEPAM. [Concomitant]
     Active Substance: LORAZEPAM
     Dosage: 1.5 MG, DAILY
     Route: 048
  8. TRANKIMAZIN [Concomitant]
     Active Substance: ALPRAZOLAM
     Dosage: 0.5 MG, Q8H
     Route: 048
  9. DILUTOL HTA [Concomitant]
     Active Substance: TORSEMIDE
     Dosage: 3.7 MG, DAILY
     Route: 048

REACTIONS (3)
  - Dysphagia [Recovered/Resolved]
  - Confusional state [Recovered/Resolved]
  - Fall [Recovered/Resolved]

NARRATIVE: CASE EVENT DATE: 20181030
